FAERS Safety Report 11716407 (Version 1)
Quarter: 2015Q4

REPORT INFORMATION
  Report Type: Spontaneous
  Country: FR (occurrence: FR)
  Receive Date: 20151109
  Receipt Date: 20151109
  Transmission Date: 20160304
  Serious: Yes (Death, Hospitalization)
  Sender: FDA-Public Use
  Company Number: FR-SA-2015SA177788

PATIENT
  Age: 90 Year
  Sex: Male

DRUGS (8)
  1. MODOPAR [Concomitant]
     Active Substance: BENSERAZIDE HYDROCHLORIDE\LEVODOPA
  2. LASILIX [Suspect]
     Active Substance: FUROSEMIDE
     Route: 048
  3. PREVISCAN [Concomitant]
     Active Substance: FLUINDIONE
  4. CRESTOR [Concomitant]
     Active Substance: ROSUVASTATIN CALCIUM
     Dosage: 5 MG
  5. TRIATEC [Concomitant]
     Active Substance: RAMIPRIL
     Dosage: 5MG 1/ DAY
  6. KARDEGIC [Concomitant]
     Active Substance: ASPIRIN LYSINE
     Dosage: 75 MG, POWDER FOR ORAL SOLUTION IN DOSE SACHET
  7. BISOCE [Concomitant]
     Active Substance: BISOPROLOL
     Dosage: 1.25 MG
  8. RAMIPRIL. [Suspect]
     Active Substance: RAMIPRIL
     Route: 048

REACTIONS (1)
  - Chronic kidney disease [Recovered/Resolved]

NARRATIVE: CASE EVENT DATE: 20150228
